FAERS Safety Report 9972743 (Version 1)
Quarter: 2014Q1

REPORT INFORMATION
  Report Type: Spontaneous
  Country: US (occurrence: US)
  Receive Date: 20140306
  Receipt Date: 20140306
  Transmission Date: 20141002
  Serious: No
  Sender: FDA-Public Use
  Company Number: US-PFIZER INC-2014058863

PATIENT
  Age: 52 Year
  Sex: Male

DRUGS (3)
  1. GENOTROPIN [Suspect]
     Dosage: 0.2 MG, DAILY
     Route: 058
     Dates: start: 20130725
  2. FLUDROCORTISONE [Concomitant]
     Dosage: UNK
  3. HYDROCORTISONE [Concomitant]
     Dosage: UNK

REACTIONS (9)
  - Pain in extremity [Unknown]
  - Arthralgia [Unknown]
  - Abdominal pain upper [Unknown]
  - Mood altered [Unknown]
  - Personality change [Unknown]
  - Weight increased [Unknown]
  - Weight decreased [Unknown]
  - Headache [Unknown]
  - Heart rate increased [Unknown]
